FAERS Safety Report 17941785 (Version 1)
Quarter: 2020Q2

REPORT INFORMATION
  Report Type: Spontaneous
  Country: US (occurrence: US)
  Receive Date: 20200624
  Receipt Date: 20200624
  Transmission Date: 20200714
  Serious: Yes (Death, Other)
  Sender: FDA-Public Use
  Company Number: US-ENDO PHARMACEUTICALS INC-2020-004350

PATIENT
  Age: 28 Year

DRUGS (3)
  1. COCAINE [Suspect]
     Active Substance: COCAINE
     Indication: PRODUCT USED FOR UNKNOWN INDICATION
     Dosage: UNK UNKNOWN, UNKNOWN
     Route: 065
  2. ALCOHOL. [Suspect]
     Active Substance: ALCOHOL
     Indication: PRODUCT USED FOR UNKNOWN INDICATION
     Dosage: UNK UNKNOWN, UNKNOWN
     Route: 048
  3. BUPROPION HYDROCHLORIDE. [Suspect]
     Active Substance: BUPROPION HYDROCHLORIDE
     Indication: PRODUCT USED FOR UNKNOWN INDICATION
     Dosage: UNK UNKNOWN, UNKNOWN
     Route: 048

REACTIONS (11)
  - Renal failure [Unknown]
  - Disseminated intravascular coagulation [Unknown]
  - Hyperthermia [Unknown]
  - Death [Fatal]
  - Coma [Unknown]
  - Seizure [Unknown]
  - Alanine aminotransferase increased [Unknown]
  - Blood creatine phosphokinase increased [Unknown]
  - Aspartate aminotransferase increased [Unknown]
  - Pyrexia [Unknown]
  - Acidosis [Unknown]

NARRATIVE: CASE EVENT DATE: 201302
